FAERS Safety Report 7068019-2 (Version None)
Quarter: 2010Q4

REPORT INFORMATION
  Report Type: 
  Country: None (occurrence: None)
  Receive Date: 20101027
  Receipt Date: 20101027
  Transmission Date: 20110411
  Serious: No
  Sender: FDA-Public Use
  Company Number: None

PATIENT
  Sex: Female
  Weight: 58.0604 kg

DRUGS (1)
  1. MIRENA [Suspect]
     Dates: start: 20091101, end: 20101031

REACTIONS (26)
  - ABDOMINAL DISTENSION [None]
  - AMNESIA [None]
  - ARTHRALGIA [None]
  - BACK PAIN [None]
  - CHRONIC SINUSITIS [None]
  - DECREASED APPETITE [None]
  - DECREASED INTEREST [None]
  - DEPRESSION [None]
  - DISTURBANCE IN ATTENTION [None]
  - DIZZINESS [None]
  - EAR INFECTION [None]
  - FATIGUE [None]
  - INSOMNIA [None]
  - IRRITABILITY [None]
  - LETHARGY [None]
  - LOSS OF LIBIDO [None]
  - MOOD SWINGS [None]
  - MOTION SICKNESS [None]
  - NASAL CONGESTION [None]
  - NASAL DRYNESS [None]
  - NECK PAIN [None]
  - PAIN [None]
  - UNEVALUABLE EVENT [None]
  - UPPER RESPIRATORY TRACT INFECTION [None]
  - VERTIGO [None]
  - WEIGHT INCREASED [None]
